FAERS Safety Report 5006117-5 (Version None)
Quarter: 2006Q1

REPORT INFORMATION
  Report Type: 
  Country: None (occurrence: None)
  Receive Date: 20060328
  Receipt Date: 20060130
  Transmission Date: 20060701
  Serious: No
  Sender: FDA-Public Use
  Company Number: 05P-163-0319101-00

PATIENT
  Age: 36 Year
  Sex: Female
  Weight: 52.6173 kg

DRUGS (6)
  1. HUMIRA [Suspect]
     Indication: RHEUMATOID ARTHRITIS
     Dosage: 40 MG, 1 IN 2 WK, SUBCUTANEOUS
     Route: 058
     Dates: start: 20040817, end: 20050901
  2. RANITIDINE HYDROCHLORIDE [Concomitant]
  3. TIZANIDINE HYDROCHLORIDE [Concomitant]
  4. LOVERAL [Concomitant]
  5. TRAMADOL HYDROCHLORIDE [Concomitant]
  6. KETOPROFEN [Concomitant]

REACTIONS (4)
  - AMNESIA [None]
  - LUMBAR RADICULOPATHY [None]
  - MULTIPLE SCLEROSIS [None]
  - NEUROPATHY PERIPHERAL [None]
